FAERS Safety Report 6613948-4 (Version None)
Quarter: 2010Q1

REPORT INFORMATION
  Report Type: 
  Country: None (occurrence: None)
  Receive Date: 20100304
  Receipt Date: 20100224
  Transmission Date: 20100710
  Serious: Yes (Hospitalization)
  Sender: FDA-Public Use
  Company Number: B0637488A

PATIENT
  Age: 38 Year
  Sex: Male
  Weight: 125 kg

DRUGS (2)
  1. CLAVAMOX [Suspect]
     Indication: ANTIBIOTIC THERAPY
     Route: 048
  2. DICLOFENAC [Concomitant]
     Route: 065

REACTIONS (3)
  - DRUG ERUPTION [None]
  - ORAL MUCOSA EROSION [None]
  - RASH MACULO-PAPULAR [None]
